FAERS Safety Report 12935461 (Version 1)
Quarter: 2016Q4

REPORT INFORMATION
  Report Type: Spontaneous
  Country: US (occurrence: US)
  Receive Date: 20161114
  Receipt Date: 20161114
  Transmission Date: 20170207
  Serious: No
  Sender: FDA-Public Use
  Company Number: US-JAZZ-2016-US-018231

PATIENT
  Sex: Female

DRUGS (22)
  1. CENTRUM SILVER                     /02363801/ [Concomitant]
     Active Substance: MINERALS\VITAMINS
  2. PILOCARPINE HCL [Concomitant]
     Active Substance: PILOCARPINE HYDROCHLORIDE
  3. VITAMIN D3 [Concomitant]
     Active Substance: CHOLECALCIFEROL
  4. XYREM [Suspect]
     Active Substance: SODIUM OXYBATE
     Indication: NARCOLEPSY
     Dosage: 2.25 G, BID
     Route: 048
     Dates: start: 201601
  5. COENZYME Q10 [Concomitant]
     Active Substance: UBIDECARENONE
  6. LIDOCAINE. [Suspect]
     Active Substance: LIDOCAINE
  7. ASPIRIN EC [Concomitant]
     Active Substance: ASPIRIN
  8. MURO-128 [Concomitant]
  9. OXCARBAZEPINE. [Suspect]
     Active Substance: OXCARBAZEPINE
     Indication: PRODUCT USED FOR UNKNOWN INDICATION
     Dosage: UNK
     Dates: end: 201608
  10. AZELASTINE [Concomitant]
     Active Substance: AZELASTINE
  11. BIOTIN [Concomitant]
     Active Substance: BIOTIN
  12. FLONASE                            /00908302/ [Concomitant]
     Active Substance: MOMETASONE FUROATE
  13. LASIX [Concomitant]
     Active Substance: FUROSEMIDE
  14. REFRESH OPTIVE ADVANCED            /07868701/ [Concomitant]
  15. RESTASIS [Concomitant]
     Active Substance: CYCLOSPORINE
  16. SYNTHROID [Concomitant]
     Active Substance: LEVOTHYROXINE SODIUM
  17. TRIAMCINOLONE [Concomitant]
     Active Substance: TRIAMCINOLONE
  18. CRESTOR [Concomitant]
     Active Substance: ROSUVASTATIN CALCIUM
  19. HYDROXYCHLOROQUINE [Concomitant]
     Active Substance: HYDROXYCHLOROQUINE
  20. NUVIGIL [Concomitant]
     Active Substance: ARMODAFINIL
  21. SIMETHICONE (DIMETHICONE) [Concomitant]
     Active Substance: DIMETHICONE
  22. SINGULAIR [Concomitant]
     Active Substance: MONTELUKAST SODIUM

REACTIONS (5)
  - Rash [Recovered/Resolved]
  - Blister [Recovering/Resolving]
  - Adverse drug reaction [Unknown]
  - Allergy to chemicals [Unknown]
  - Formication [Recovered/Resolved]

NARRATIVE: CASE EVENT DATE: 2016
